FAERS Safety Report 10979189 (Version 3)
Quarter: 2015Q2

REPORT INFORMATION
  Report Type: Report from Study
  Country: DE (occurrence: None)
  Receive Date: 20150326
  Receipt Date: 20150504
  Transmission Date: 20150821
  Serious: Yes (Hospitalization)
  Sender: FDA-Public Use
  Company Number: GTI003069

PATIENT
  Age: 64 Year
  Sex: Male

DRUGS (4)
  1. DAXAS [Concomitant]
     Active Substance: ROFLUMILAST
  2. PROLASTIN [Suspect]
     Active Substance: .ALPHA.1-PROTEINASE INHIBITOR HUMAN
     Indication: ALPHA-1 ANTI-TRYPSIN DEFICIENCY
     Route: 042
     Dates: start: 201402
  3. NOVAMINSULFON [Concomitant]
     Active Substance: METAMIZOLE
  4. IBUPROFEN. [Concomitant]
     Active Substance: IBUPROFEN

REACTIONS (9)
  - Influenza [None]
  - Diarrhoea [None]
  - Confusional state [None]
  - Asthenia [None]
  - Gastrointestinal infection [None]
  - Abnormal loss of weight [None]
  - Dehydration [None]
  - Micturition urgency [None]
  - Somnolence [None]

NARRATIVE: CASE EVENT DATE: 20150219
